FAERS Safety Report 14303321 (Version 1)
Quarter: 2017Q4

REPORT INFORMATION
  Report Type: Spontaneous
  Country: DE (occurrence: DE)
  Receive Date: 20171219
  Receipt Date: 20171219
  Transmission Date: 20180321
  Serious: Yes (Other)
  Sender: FDA-Public Use
  Company Number: DE-OTSUKA-18751909

PATIENT
  Age: 55 Year
  Sex: Female

DRUGS (1)
  1. ABILIFY [Suspect]
     Active Substance: ARIPIPRAZOLE
     Indication: BIPOLAR I DISORDER
     Dosage: DECEMBER 2010/JANUARY 2011
     Route: 065

REACTIONS (3)
  - Suicidal ideation [Unknown]
  - Hypertension [Unknown]
  - Visual impairment [Unknown]
